FAERS Safety Report 5089626-2 (Version None)
Quarter: 2006Q3

REPORT INFORMATION
  Report Type: 
  Country: None (occurrence: None)
  Receive Date: 20060822
  Receipt Date: 20060803
  Transmission Date: 20061208
  Serious: Yes (Hospitalization, Other)
  Sender: FDA-Public Use
  Company Number: US200608001606

PATIENT
  Age: 60 Year
  Sex: Male
  Weight: 99.8 kg

DRUGS (2)
  1. ZYPREXA [Suspect]
     Dates: start: 19990101, end: 20040501
  2. HYDROCORTISONE (HYDROCORTISONE) OINTMENT [Concomitant]

REACTIONS (5)
  - DIABETES MELLITUS [None]
  - GLUCOSE TOLERANCE IMPAIRED [None]
  - HEPATITIS VIRAL [None]
  - METABOLIC DISORDER [None]
  - OBESITY [None]
